FAERS Safety Report 15232326 (Version 2)
Quarter: 2018Q3

REPORT INFORMATION
  Report Type: Report from Study
  Country: None (occurrence: JP)
  Receive Date: 20180802
  Receipt Date: 20180815
  Transmission Date: 20181010
  Serious: Yes (Death, Life-Threatening)
  Sender: FDA-Public Use
  Company Number: JP-BAUSCH-BL-2018-020801

PATIENT
  Age: 5 Decade
  Sex: Male

DRUGS (1)
  1. CHOREAZINE TABLETS 12.5 MG [Suspect]
     Active Substance: TETRABENAZINE
     Indication: HUNTINGTON^S DISEASE
     Route: 048
     Dates: start: 20180411

REACTIONS (2)
  - Drug-induced liver injury [Not Recovered/Not Resolved]
  - Arrhythmia [Fatal]

NARRATIVE: CASE EVENT DATE: 2018
